FAERS Safety Report 15231525 (Version 2)
Quarter: 2018Q3

REPORT INFORMATION
  Report Type: Spontaneous
  Country: JP (occurrence: JP)
  Receive Date: 20180802
  Receipt Date: 20180910
  Transmission Date: 20181010
  Serious: Yes (Hospitalization, Other)
  Sender: FDA-Public Use
  Company Number: PHJP2018JP014507

PATIENT
  Age: 72 Year
  Sex: Female

DRUGS (2)
  1. TEGRETOL [Suspect]
     Active Substance: CARBAMAZEPINE
     Indication: EPILEPSY
  2. TEGRETOL [Suspect]
     Active Substance: CARBAMAZEPINE
     Indication: MYELITIS
     Dosage: UNK
     Route: 048
     Dates: start: 201704

REACTIONS (8)
  - Nuclear magnetic resonance imaging brain abnormal [Unknown]
  - White matter lesion [Unknown]
  - Anti-aquaporin-4 antibody positive [Unknown]
  - Neuromyelitis optica spectrum disorder [Unknown]
  - Binocular eye movement disorder [Unknown]
  - Dysarthria [Recovering/Resolving]
  - Altered state of consciousness [Recovering/Resolving]
  - CSF oligoclonal band present [Unknown]

NARRATIVE: CASE EVENT DATE: 201708
